FAERS Safety Report 6607835-5 (Version None)
Quarter: 2010Q1

REPORT INFORMATION
  Report Type: 
  Country: None (occurrence: None)
  Receive Date: 20100225
  Receipt Date: 20100225
  Transmission Date: 20100710
  Serious: Yes (Life-Threatening, Hospitalization, Disabling, Other)
  Sender: FDA-Public Use
  Company Number: None

PATIENT
  Sex: Female
  Weight: 45.3597 kg

DRUGS (2)
  1. REMICADE [Suspect]
     Indication: CROHN'S DISEASE
     Dosage: 2001 IN HOSP 2003 IN CANCER CTR
     Dates: start: 20010101
  2. REMICADE [Suspect]
     Indication: CROHN'S DISEASE
     Dosage: 2001 IN HOSP 2003 IN CANCER CTR
     Dates: start: 20030101

REACTIONS (6)
  - ARTHRALGIA [None]
  - BALANCE DISORDER [None]
  - BRAIN INJURY [None]
  - PARALYSIS [None]
  - SMALL INTESTINAL OBSTRUCTION [None]
  - WALKING AID USER [None]
